FAERS Safety Report 9438577 (Version 2)
Quarter: 2013Q3

REPORT INFORMATION
  Report Type: Report from Study
  Country: US (occurrence: US)
  Receive Date: 20130802
  Receipt Date: 20130812
  Transmission Date: 20140515
  Serious: Yes (Hospitalization, Other)
  Sender: FDA-Public Use
  Company Number: US-PFIZER INC-2013220980

PATIENT
  Age: 58 Year
  Sex: Female
  Weight: 78.82 kg

DRUGS (2)
  1. MORPHINE SULFATE [Suspect]
     Indication: PAIN
     Dosage: 25-30 MG AS NEEDED
     Route: 048
     Dates: start: 20130213
  2. OXYCODONE HYDROCHLORIDE [Suspect]
     Indication: PAIN
     Dosage: 5-10 MG AS NEEDED
     Route: 048
     Dates: start: 20130213

REACTIONS (9)
  - Renal failure acute [Unknown]
  - Hypernatraemia [Unknown]
  - Pneumonia [Unknown]
  - Sepsis [Unknown]
  - Urinary tract infection [Unknown]
  - Dehydration [Unknown]
  - Rhabdomyolysis [Recovering/Resolving]
  - Sinus tachycardia [Recovering/Resolving]
  - Fall [Recovering/Resolving]
